FAERS Safety Report 5536808-9 (Version None)
Quarter: 2007Q4

REPORT INFORMATION
  Report Type: 
  Country: None (occurrence: None)
  Receive Date: 20071204
  Receipt Date: 20071121
  Transmission Date: 20080405
  Serious: Yes (Hospitalization)
  Sender: FDA-Public Use
  Company Number: OMPQ-NO-0711S-1347

PATIENT
  Age: 82 Year
  Sex: Female

DRUGS (8)
  1. OMNIPAQUE 300 [Suspect]
     Indication: ROUTINE HEALTH MAINTENANCE
     Dosage: NR, SINGLE DOSE, I.V.
     Route: 042
     Dates: start: 20071101
  2. MEGLITINIDE (GLUFAST) [Concomitant]
  3. BEZAFIBRATE (BEZATOL SR) [Concomitant]
  4. CANDESARTAN CILEXETIL (BLOPRESS) [Concomitant]
  5. CARVEDILOL (ARTIST) [Concomitant]
  6. BENIDIPINE HYDROCHLORIDE (CONIEL) [Concomitant]
  7. FAMOTIDINE (GASTER D) [Concomitant]
  8. TRICHLORMETHIAZIDE (FLUITRAN) [Concomitant]

REACTIONS (6)
  - ALANINE AMINOTRANSFERASE INCREASED [None]
  - ASPARTATE AMINOTRANSFERASE INCREASED [None]
  - BLOOD BILIRUBIN INCREASED [None]
  - JAUNDICE [None]
  - LIVER DISORDER [None]
  - POST PROCEDURAL COMPLICATION [None]
